FAERS Safety Report 16300074 (Version 2)
Quarter: 2019Q2

REPORT INFORMATION
  Report Type: Spontaneous
  Country: FR (occurrence: FR)
  Receive Date: 20190510
  Receipt Date: 20190613
  Transmission Date: 20190711
  Serious: Yes (Other)
  Sender: FDA-Public Use
  Company Number: FR-NAPPMUNDI-GBR-2019-0065675

PATIENT
  Age: 71 Year
  Sex: Female

DRUGS (1)
  1. OXYCONTIN [Suspect]
     Active Substance: OXYCODONE HYDROCHLORIDE
     Indication: PAIN
     Dosage: 2 DF, DAILY
     Route: 065
     Dates: end: 20190326

REACTIONS (8)
  - Decreased appetite [Recovering/Resolving]
  - Abdominal pain upper [Unknown]
  - Abdominal pain [Unknown]
  - Amnesia [Recovering/Resolving]
  - Sleep deficit [Recovered/Resolved]
  - Drug withdrawal syndrome [Recovering/Resolving]
  - Constipation [Recovering/Resolving]
  - Hyperhidrosis [Recovered/Resolved]

NARRATIVE: CASE EVENT DATE: 20190326
